FAERS Safety Report 9982796 (Version 1)
Quarter: 2014Q1

REPORT INFORMATION
  Report Type: Report from Study
  Country: US (occurrence: US)
  Receive Date: 20140307
  Receipt Date: 20140307
  Transmission Date: 20141002
  Serious: No
  Sender: FDA-Public Use
  Company Number: US-ABBVIE-13P-163-1176199-00

PATIENT
  Age: 65 Year
  Sex: Female

DRUGS (7)
  1. HUMIRA [Suspect]
     Indication: CROHN^S DISEASE
     Dates: start: 20130906
  2. POTASSIUM [Concomitant]
     Indication: BLOOD POTASSIUM DECREASED
  3. HCTZ [Concomitant]
     Indication: PRODUCT USED FOR UNKNOWN INDICATION
     Dosage: FLUID
  4. COREG [Concomitant]
     Indication: BLOOD PRESSURE
  5. SIMVASTATIN [Concomitant]
     Indication: PRODUCT USED FOR UNKNOWN INDICATION
  6. SYNTHROID [Concomitant]
     Indication: HYPOTHYROIDISM
  7. CELEXA [Concomitant]
     Indication: NERVOUSNESS

REACTIONS (1)
  - Injection site pain [Recovered/Resolved]
